FAERS Safety Report 23529442 (Version 1)
Quarter: 2024Q1

REPORT INFORMATION
  Report Type: Spontaneous
  Country: ES (occurrence: ES)
  Receive Date: 20240216
  Receipt Date: 20240216
  Transmission Date: 20240410
  Serious: Yes (Other)
  Sender: FDA-Public Use
  Company Number: None

PATIENT
  Age: 25 Year
  Sex: Male

DRUGS (1)
  1. AMOXICILLIN [Suspect]
     Active Substance: AMOXICILLIN
     Indication: Tooth infection
     Route: 048
     Dates: start: 20231206, end: 20231208

REACTIONS (3)
  - Urticaria [Recovered/Resolved]
  - Lip oedema [Recovered/Resolved]
  - Orbital oedema [Recovered/Resolved]

NARRATIVE: CASE EVENT DATE: 20231208
